FAERS Safety Report 7184435-2 (Version None)
Quarter: 2010Q4

REPORT INFORMATION
  Report Type: 
  Country: None (occurrence: None)
  Receive Date: 20101222
  Receipt Date: 20101214
  Transmission Date: 20110411
  Serious: Yes (Hospitalization)
  Sender: FDA-Public Use
  Company Number: AU-ASTRAZENECA-2010SE59236

PATIENT
  Age: 35 Year
  Sex: Female

DRUGS (8)
  1. QUETIAPINE [Suspect]
     Indication: ANXIETY
     Route: 048
  2. IMIPRAMINE [Suspect]
     Indication: ANXIETY
  3. LORAZEPAM [Suspect]
     Indication: ANXIETY
  4. DESVENLAFAXINE [Suspect]
     Indication: DEPRESSION
  5. DESVENLAFAXINE [Suspect]
  6. DIAZEPAM [Suspect]
  7. DIAZEPAM [Suspect]
     Dosage: REDUCED
  8. MIRTAZAPINE [Suspect]
     Indication: ANXIETY

REACTIONS (4)
  - ANXIETY [None]
  - DRUG EXPOSURE DURING PREGNANCY [None]
  - PALPITATIONS [None]
  - SEDATION [None]
